FAERS Safety Report 8126138-3 (Version None)
Quarter: 2012Q1

REPORT INFORMATION
  Report Type: 
  Country: None (occurrence: None)
  Receive Date: 20120209
  Receipt Date: 20120202
  Transmission Date: 20120608
  Serious: Yes (Other)
  Sender: FDA-Public Use
  Company Number: PHHY2012DE010175

PATIENT
  Sex: Female
  Weight: 68 kg

DRUGS (3)
  1. EMBOLEX [Suspect]
     Indication: THROMBOSIS PROPHYLAXIS
     Dosage: UNK UKN, UNK
     Route: 058
     Dates: start: 20110413, end: 20110417
  2. ZOMETA [Suspect]
     Indication: BONE DISORDER
     Dosage: 4 MG, EVERY 4 WEEKS
     Dates: start: 20100923
  3. ARIMIDEX [Concomitant]
     Dosage: 1 MG, UNK
     Route: 065
     Dates: start: 20100923

REACTIONS (3)
  - ACCIDENT [None]
  - MENISCUS LESION [None]
  - ARTHRALGIA [None]
